FAERS Safety Report 9734064 (Version 6)
Quarter: 2016Q4

REPORT INFORMATION
  Report Type: Spontaneous
  Country: US (occurrence: US)
  Receive Date: 20131205
  Receipt Date: 20161122
  Transmission Date: 20170207
  Serious: Yes (Hospitalization, Disabling, Other)
  Sender: FDA-Public Use
  Company Number: US-009507513-1312USA001839

PATIENT
  Sex: Female

DRUGS (5)
  1. FOSAMAX [Suspect]
     Active Substance: ALENDRONATE SODIUM
     Indication: OSTEOPOROSIS PROPHYLAXIS
     Dosage: 70 MG, QW
     Route: 048
     Dates: start: 200501, end: 200802
  2. ALENDRONATE SODIUM. [Suspect]
     Active Substance: ALENDRONATE SODIUM
     Indication: OSTEOPOROSIS
  3. FOSAMAX [Suspect]
     Active Substance: ALENDRONATE SODIUM
     Indication: OSTEOPENIA
  4. FOSAMAX [Suspect]
     Active Substance: ALENDRONATE SODIUM
     Indication: OSTEOPOROSIS
  5. ALENDRONATE SODIUM. [Suspect]
     Active Substance: ALENDRONATE SODIUM
     Indication: OSTEOPOROSIS PROPHYLAXIS
     Dosage: 70 MG, QW
     Route: 048
     Dates: start: 20080209, end: 200903

REACTIONS (23)
  - Hip fracture [Not Recovered/Not Resolved]
  - Body height decreased [Unknown]
  - Thyroid mass [Unknown]
  - Femur fracture [Unknown]
  - Intramedullary rod insertion [Unknown]
  - Femur fracture [Not Recovered/Not Resolved]
  - Hypercholesterolaemia [Unknown]
  - Breast cancer [Unknown]
  - Arthralgia [Unknown]
  - Tendonitis [Unknown]
  - Piriformis syndrome [Unknown]
  - Vitamin D decreased [Unknown]
  - Hypertension [Not Recovered/Not Resolved]
  - Sciatica [Unknown]
  - Diabetes mellitus [Unknown]
  - Tooth disorder [Unknown]
  - Low turnover osteopathy [Not Recovered/Not Resolved]
  - Intervertebral disc degeneration [Unknown]
  - Hyperparathyroidism [Unknown]
  - Oral surgery [Unknown]
  - Fracture nonunion [Recovering/Resolving]
  - Osteoporosis [Not Recovered/Not Resolved]
  - Parathyroid tumour [Unknown]

NARRATIVE: CASE EVENT DATE: 2005
